FAERS Safety Report 8766137 (Version 2)
Quarter: 2013Q4

REPORT INFORMATION
  Report Type: Spontaneous
  Country: US (occurrence: US)
  Receive Date: 20120904
  Receipt Date: 20131031
  Transmission Date: 20140711
  Serious: No
  Sender: FDA-Public Use
  Company Number: US-009507513-2012SP013772

PATIENT
  Sex: Female
  Weight: 100.68 kg

DRUGS (4)
  1. NUVARING [Suspect]
     Indication: CONTRACEPTION
     Dosage: UNK UNK, QM
     Route: 067
     Dates: start: 201111, end: 201202
  2. VITAMINS (UNSPECIFIED) [Concomitant]
     Indication: PREGNANCY
     Dosage: UNK, QD
     Route: 048
  3. PROMETHAZINE [Concomitant]
     Dosage: 25 MG, UNK
     Route: 048
     Dates: start: 20120509
  4. REGLAN [Concomitant]
     Dosage: 5 MG, TID
     Route: 048
     Dates: start: 20120529, end: 20120726

REACTIONS (1)
  - Unintended pregnancy [Not Recovered/Not Resolved]
